FAERS Safety Report 20838684 (Version 4)
Quarter: 2022Q4

REPORT INFORMATION
  Report Type: Spontaneous
  Country: JP (occurrence: JP)
  Receive Date: 20220517
  Receipt Date: 20221130
  Transmission Date: 20230113
  Serious: Yes (Hospitalization, Other)
  Sender: FDA-Public Use
  Company Number: JP-TAKEDA-2022TJP045860

PATIENT
  Age: 88 Year
  Sex: Female

DRUGS (2)
  1. CABOMETYX [Suspect]
     Active Substance: CABOZANTINIB S-MALATE
     Indication: Renal cell carcinoma
     Dosage: 20 MG, QD
     Route: 048
     Dates: start: 202110
  2. NIVOLUMAB [Suspect]
     Active Substance: NIVOLUMAB
     Indication: Renal cell carcinoma
     Dosage: UNK
     Route: 065
     Dates: start: 202110

REACTIONS (7)
  - Oedema [Unknown]
  - Adrenal insufficiency [Unknown]
  - Hypothyroidism [Unknown]
  - Liver disorder [Unknown]
  - Oedema peripheral [Unknown]
  - Blood creatinine increased [Unknown]
  - Hypertension [Unknown]
